FAERS Safety Report 10027812 (Version 2)
Quarter: 2014Q2

REPORT INFORMATION
  Report Type: Spontaneous
  Country: US (occurrence: US)
  Receive Date: 20140321
  Receipt Date: 20140501
  Transmission Date: 20141212
  Serious: No
  Sender: FDA-Public Use
  Company Number: US-009507513-1403USA004942

PATIENT
  Sex: Female
  Weight: 91.61 kg

DRUGS (3)
  1. PEGINTRON [Suspect]
     Indication: HEPATITIS C
     Dosage: REDIPEN; 0.5ML,QW
     Route: 058
     Dates: start: 20140228
  2. REBETOL [Suspect]
     Indication: HEPATITIS C
     Dosage: 200 MG, BID; 3 AM AND PM
     Route: 048
     Dates: start: 20140228
  3. SOVALDI [Concomitant]
     Dosage: DOSE 1(UNIT UNKNOWN), QD
     Route: 048

REACTIONS (8)
  - Injection site vesicles [Recovered/Resolved]
  - Insomnia [Recovered/Resolved]
  - Injection site erythema [Recovered/Resolved]
  - Injection site vesicles [Recovered/Resolved]
  - Injection site discharge [Recovered/Resolved]
  - Urticaria [Unknown]
  - Injection site reaction [Unknown]
  - Rash [Recovered/Resolved]
